FAERS Safety Report 15943467 (Version 1)
Quarter: 2019Q1

REPORT INFORMATION
  Report Type: Spontaneous
  Country: CN (occurrence: CN)
  Receive Date: 20190210
  Receipt Date: 20190210
  Transmission Date: 20190417
  Serious: Yes (Other)
  Sender: FDA-Public Use
  Company Number: CN-BAXTER-2019BAX002722

PATIENT
  Sex: Female
  Weight: 50 kg

DRUGS (2)
  1. 0.9% SODIUM CHLORIDE INJECTION [Suspect]
     Active Substance: SODIUM CHLORIDE
     Indication: MASTITIS
     Dosage: (CEFMETAZOLE SODIUM + 0.9% SODIUM CHLORIDE), ADMINISTERED VIA IV GTT; (ST)
     Route: 041
     Dates: start: 20190115, end: 20190115
  2. CEFMETAZON [Suspect]
     Active Substance: CEFMETAZOLE SODIUM
     Indication: MASTITIS
     Dosage: (CEFMETAZOLE SODIUM + 0.9% SODIUM CHLORIDE), ADMINISTERED VIA IV GTT; (ST)
     Route: 041
     Dates: start: 20190115, end: 20190115

REACTIONS (3)
  - Pyrexia [Recovering/Resolving]
  - Throat tightness [Recovering/Resolving]
  - Anaphylactoid reaction [Recovering/Resolving]

NARRATIVE: CASE EVENT DATE: 20190115
